FAERS Safety Report 10565330 (Version 1)
Quarter: 2014Q4

REPORT INFORMATION
  Report Type: Spontaneous
  Country: US (occurrence: None)
  Receive Date: 20141104
  Receipt Date: 20141104
  Transmission Date: 20150529
  Serious: Yes (Hospitalization)
  Sender: FDA-Public Use
  Company Number: None

PATIENT
  Age: 45 Year
  Sex: Female
  Weight: 66.86 kg

DRUGS (5)
  1. CYCLOPHOSPHAMIDE. [Suspect]
     Active Substance: CYCLOPHOSPHAMIDE
     Dates: end: 20140923
  2. CYTARABINE. [Suspect]
     Active Substance: CYTARABINE
     Dates: end: 20141003
  3. METHOTREXATE [Suspect]
     Active Substance: METHOTREXATE
     Dates: end: 20141014
  4. ERWINIA ASPARAGINASE [Suspect]
     Active Substance: ASPARAGINASE ERWINIA CHRYSANTHEMI
     Dates: end: 20141017
  5. MERCAPTOPURINE. [Suspect]
     Active Substance: MERCAPTOPURINE
     Dates: end: 20141006

REACTIONS (7)
  - Procedural headache [None]
  - Dyskinesia [None]
  - Superior sagittal sinus thrombosis [None]
  - Muscle spasms [None]
  - Generalised tonic-clonic seizure [None]
  - Hemiparesis [None]
  - Muscular weakness [None]

NARRATIVE: CASE EVENT DATE: 20141020
